FAERS Safety Report 4814745-2 (Version None)
Quarter: 2005Q4

REPORT INFORMATION
  Report Type: 
  Country: None (occurrence: None)
  Receive Date: 20051028
  Receipt Date: 20041220
  Transmission Date: 20060501
  Serious: No
  Sender: FDA-Public Use
  Company Number: US-GLAXOSMITHKLINE-A0538035A

PATIENT
  Sex: Male

DRUGS (6)
  1. ADVAIR DISKUS 100/50 [Suspect]
     Indication: CHRONIC OBSTRUCTIVE PULMONARY DISEASE
     Route: 055
  2. COREG [Concomitant]
  3. CRESTOR [Concomitant]
  4. FLOMAX [Concomitant]
  5. ATROVENT [Concomitant]
  6. FUROSEMIDE [Concomitant]

REACTIONS (1)
  - WHEEZING [None]
